FAERS Safety Report 8985621 (Version 1)
Quarter: 2012Q4

REPORT INFORMATION
  Report Type: 
  Country: GB (occurrence: GB)
  Receive Date: 20121226
  Receipt Date: 20121226
  Transmission Date: 20130627
  Serious: Yes (Other)
  Sender: FDA-Public Use
  Company Number: GB-PERRIGO-12GB010888

PATIENT
  Age: 47 Year
  Sex: Female
  Weight: 93.43 kg

DRUGS (4)
  1. CETIRIZINE HYDROCHLORIDE 16208/0066 10 MG [Suspect]
     Indication: HYPERSENSITIVITY
     Dosage: 1 DF, qd
     Route: 048
     Dates: start: 2011, end: 20121202
  2. CETIRIZINE HYDROCHLORIDE 16208/0066 10 MG [Suspect]
     Indication: ASTHMA
  3. ANTIBIOTICS [Concomitant]
     Indication: URINARY TRACT INFECTION
     Dosage: 1 DF, qd
     Route: 048
     Dates: start: 201212
  4. INHALER [Concomitant]
     Indication: PRODUCT USED FOR UNKNOWN INDICATION
     Dosage: UNK
     Route: 065

REACTIONS (4)
  - Withdrawal syndrome [Not Recovered/Not Resolved]
  - Pruritus [Not Recovered/Not Resolved]
  - Weight increased [Recovering/Resolving]
  - Drug effect decreased [Unknown]
